FAERS Safety Report 10474526 (Version 1)
Quarter: 2014Q3

REPORT INFORMATION
  Report Type: Spontaneous
  Country: US (occurrence: US)
  Receive Date: 20140924
  Receipt Date: 20140924
  Transmission Date: 20150326
  Serious: No
  Sender: FDA-Public Use
  Company Number: US-009507513-1409USA001974

PATIENT
  Sex: Female

DRUGS (1)
  1. AFRIN [Suspect]
     Active Substance: OXYMETAZOLINE
     Indication: EPISTAXIS
     Dosage: UNK, UNKNOWN
     Route: 045

REACTIONS (2)
  - Product quality issue [Unknown]
  - Drug prescribing error [Unknown]
